FAERS Safety Report 6830141-0 (Version None)
Quarter: 2010Q3

REPORT INFORMATION
  Report Type: 
  Country: None (occurrence: None)
  Receive Date: 20100711
  Receipt Date: 20100525
  Transmission Date: 20110219
  Serious: No
  Sender: FDA-Public Use
  Company Number: US-ALLERGAN-1006866US

PATIENT
  Age: 81 Year
  Sex: Female

DRUGS (5)
  1. LATISSE [Suspect]
     Indication: GROWTH OF EYELASHES
     Dosage: 1 GTT, UNK
     Route: 061
  2. ASPIRIN [Concomitant]
  3. ESTRADIOL [Concomitant]
  4. METOPROLOL [Concomitant]
  5. CHOLESTEROL LOWERING DRUG [Concomitant]

REACTIONS (5)
  - DRUG ADMINISTRATION ERROR [None]
  - ERYTHEMA OF EYELID [None]
  - EYE PRURITUS [None]
  - HAIR GROWTH ABNORMAL [None]
  - OCULAR HYPERAEMIA [None]
